FAERS Safety Report 5686252-9 (Version None)
Quarter: 2008Q1

REPORT INFORMATION
  Report Type: 
  Country: None (occurrence: None)
  Receive Date: 20080328
  Receipt Date: 20070711
  Transmission Date: 20080703
  Serious: No
  Sender: FDA-Public Use
  Company Number: US-BAYER-US-2007-025893

PATIENT
  Age: 26 Year
  Sex: Female
  Weight: 66 kg

DRUGS (4)
  1. MIRENA [Suspect]
     Indication: CONTRACEPTION
     Route: 015
     Dates: start: 20070401, end: 20070711
  2. INDERAL [Concomitant]
     Dosage: UNIT DOSE: 120 MG
  3. TOPAMAX [Concomitant]
     Dosage: UNIT DOSE: 200 MG
  4. CYMBALTA [Concomitant]
     Dosage: UNIT DOSE: 60 MG

REACTIONS (3)
  - ABDOMINAL PAIN [None]
  - METRORRHAGIA [None]
  - RASH [None]
